FAERS Safety Report 8762037 (Version 4)
Quarter: 2013Q4

REPORT INFORMATION
  Report Type: Spontaneous
  Country: CA (occurrence: CA)
  Receive Date: 20120829
  Receipt Date: 20131213
  Transmission Date: 20140711
  Serious: Yes (Death, Hospitalization)
  Sender: FDA-Public Use
  Company Number: CA-PFIZER INC-2012210061

PATIENT
  Age: 64 Year
  Sex: Female
  Weight: 52.9 kg

DRUGS (1)
  1. XALKORI [Suspect]
     Indication: NON-SMALL CELL LUNG CANCER METASTATIC
     Dosage: 250 MG, 2X/DAY
     Dates: start: 20120814

REACTIONS (4)
  - Haematemesis [Fatal]
  - Aspiration [Fatal]
  - Dysphagia [Unknown]
  - Oesophageal disorder [Unknown]
